FAERS Safety Report 5217241-6 (Version None)
Quarter: 2007Q1

REPORT INFORMATION
  Report Type: 
  Country: None (occurrence: None)
  Receive Date: 20070122
  Receipt Date: 20070122
  Transmission Date: 20070707
  Serious: Yes (Hospitalization)
  Sender: FDA-Public Use
  Company Number: None

PATIENT
  Age: 73 Year
  Sex: Male

DRUGS (1)
  1. WARFARIN SODIUM [Suspect]
     Dosage: 5 MG PO QD
     Route: 048

REACTIONS (4)
  - ANAEMIA [None]
  - FATIGUE [None]
  - NAUSEA [None]
  - RECTAL HAEMORRHAGE [None]
